FAERS Safety Report 7759353-9 (Version None)
Quarter: 2011Q3

REPORT INFORMATION
  Report Type: 
  Country: None (occurrence: None)
  Receive Date: 20110919
  Receipt Date: 20110906
  Transmission Date: 20111222
  Serious: No
  Sender: FDA-Public Use
  Company Number: US-JNJFOC-20110904017

PATIENT
  Sex: Male
  Weight: 72.58 kg

DRUGS (4)
  1. DURAGESIC-100 [Suspect]
     Indication: INTERVERTEBRAL DISC PROTRUSION
     Route: 062
     Dates: start: 20110201
  2. AMBIEN [Concomitant]
     Indication: SLEEP DISORDER
     Route: 048
  3. DURAGESIC-100 [Suspect]
     Route: 062
     Dates: start: 20090101, end: 20110201
  4. XANAX [Concomitant]
     Indication: PANIC DISORDER
     Route: 048
     Dates: start: 20070101

REACTIONS (6)
  - PAIN [None]
  - DRUG DOSE OMISSION [None]
  - WRONG TECHNIQUE IN DRUG USAGE PROCESS [None]
  - WITHDRAWAL SYNDROME [None]
  - PRODUCT QUALITY ISSUE [None]
  - THERAPEUTIC RESPONSE DECREASED [None]
